FAERS Safety Report 26028107 (Version 1)
Quarter: 2025Q4

REPORT INFORMATION
  Report Type: Spontaneous
  Country: EU (occurrence: EU)
  Receive Date: 20251111
  Receipt Date: 20251111
  Transmission Date: 20260117
  Serious: Yes (Hospitalization)
  Sender: PFIZER
  Company Number: EU-ROCHE-1175695

PATIENT
  Age: 58 Year
  Sex: Female
  Weight: 67 kg

DRUGS (26)
  1. EPIRUBICIN HYDROCHLORIDE [Suspect]
     Active Substance: EPIRUBICIN HYDROCHLORIDE
     Indication: Breast cancer female
     Dosage: 90 MG/M2, EVERY 3 WEEKS (LAST DOSE PRIOR TO THE SAE ON 06DEC2012)
     Route: 042
     Dates: start: 20121004
  2. EPIRUBICIN HYDROCHLORIDE [Suspect]
     Active Substance: EPIRUBICIN HYDROCHLORIDE
     Dosage: LAST DOSE PRIOR TO THE SAE ON 06DEC2012
     Dates: start: 20121206
  3. PACLITAXEL [Suspect]
     Active Substance: PACLITAXEL
     Indication: Breast cancer female
     Dosage: 80 MG/M2, WEEKLY
     Route: 042
     Dates: start: 20121227
  4. PACLITAXEL [Suspect]
     Active Substance: PACLITAXEL
     Dosage: UNK
     Route: 042
     Dates: start: 20121228
  5. PACLITAXEL [Suspect]
     Active Substance: PACLITAXEL
     Dosage: UNK
     Dates: start: 20130111
  6. PACLITAXEL [Suspect]
     Active Substance: PACLITAXEL
     Dosage: UNK
     Dates: start: 20130218
  7. TRASTUZUMAB [Suspect]
     Active Substance: TRASTUZUMAB
     Indication: Breast cancer female
     Dosage: 6 MG/KG, EVERY 3 WEEKS (LAST DOSE PRIOR TO THE SAE ON 27DEC2012;11FEB2013)
     Route: 042
     Dates: start: 20121227
  8. TRASTUZUMAB [Suspect]
     Active Substance: TRASTUZUMAB
     Dosage: UNK
     Dates: start: 20130211
  9. PERTUZUMAB [Suspect]
     Active Substance: PERTUZUMAB
     Indication: Breast cancer female
     Dosage: 840 MG, EVERY 3 WEEKS (LOADING DOSE LAST DOSE PRIOR TO THE SAE ON 27DEC2012;11FE2013)
     Route: 042
  10. PERTUZUMAB [Suspect]
     Active Substance: PERTUZUMAB
     Dosage: 420 MG, EVERY 3 WEEKS (MAINTENANCE DOSE)
     Route: 042
  11. PERTUZUMAB [Suspect]
     Active Substance: PERTUZUMAB
     Dosage: UNK, EVERY 3 WEEKS
     Route: 042
  12. PERTUZUMAB [Suspect]
     Active Substance: PERTUZUMAB
     Dosage: UNK
     Dates: start: 20121227
  13. PERTUZUMAB [Suspect]
     Active Substance: PERTUZUMAB
     Dosage: UNK
     Dates: start: 20130211
  14. CYCLOPHOSPHAMIDE [Suspect]
     Active Substance: CYCLOPHOSPHAMIDE
     Indication: Breast cancer female
     Dosage: 600 MG/M2, EVERY 3 WEEKS
     Route: 042
     Dates: start: 20121004
  15. CYCLOPHOSPHAMIDE [Suspect]
     Active Substance: CYCLOPHOSPHAMIDE
     Dosage: LAST DOSE PRIOR TO THE SAE ON 06DEC2012
     Dates: start: 20121206
  16. DEXAMETHASONE [Concomitant]
     Active Substance: DEXAMETHASONE
     Dosage: UNK
     Dates: start: 20121004
  17. DEXAMETHASONE [Concomitant]
     Active Substance: DEXAMETHASONE
     Dosage: UNK
     Dates: start: 20130218, end: 20130218
  18. DEXAMETHASONE [Concomitant]
     Active Substance: DEXAMETHASONE
     Dosage: UNK
     Dates: start: 20130218
  19. GRAVIBINON [Concomitant]
     Dosage: UNK
     Dates: start: 20121004
  20. EMEND [Concomitant]
     Active Substance: APREPITANT
     Dosage: UNK
     Dates: start: 20121004
  21. GRANISETRON [Concomitant]
     Active Substance: GRANISETRON
     Dosage: UNK
     Dates: start: 20121004
  22. GRANISETRON [Concomitant]
     Active Substance: GRANISETRON
     Dosage: UNK
     Dates: start: 20130218, end: 20130218
  23. GRANISETRON [Concomitant]
     Active Substance: GRANISETRON
     Dosage: UNK
     Dates: start: 20130218, end: 20130218
  24. GRANISETRON [Concomitant]
     Active Substance: GRANISETRON
     Dosage: UNK
  25. CLEMASTINE [Concomitant]
     Active Substance: CLEMASTINE
     Dosage: UNK
     Dates: start: 20130218, end: 20130218
  26. CIMETIDINE [Concomitant]
     Active Substance: CIMETIDINE
     Dosage: UNK
     Dates: start: 20130218, end: 20130218

REACTIONS (3)
  - Dyspnoea [Recovered/Resolved]
  - Hypersensitivity [Recovered/Resolved]
  - Upper respiratory tract infection [Recovered/Resolved]

NARRATIVE: CASE EVENT DATE: 20121227
